FAERS Safety Report 18673932 (Version 1)
Quarter: 2020Q4

REPORT INFORMATION
  Report Type: Spontaneous
  Country: RU (occurrence: RU)
  Receive Date: 20201228
  Receipt Date: 20201228
  Transmission Date: 20210114
  Serious: Yes (Other)
  Sender: FDA-Public Use
  Company Number: RU-FRESENIUS KABI-FK202014010

PATIENT

DRUGS (3)
  1. MELPHALAN (MANUFACTURER UNKNOWN) [Suspect]
     Active Substance: MELPHALAN
     Indication: NEUROBLASTOMA
     Route: 065
  2. TREOSULFAN [Suspect]
     Active Substance: TREOSULFAN
     Indication: NEUROBLASTOMA
     Route: 065
  3. AZACITIDINE. [Suspect]
     Active Substance: AZACITIDINE
     Indication: NEUROBLASTOMA
     Dosage: 8 INJECTIONS
     Route: 065

REACTIONS (4)
  - Febrile neutropenia [Unknown]
  - Gastrointestinal toxicity [Unknown]
  - Liver disorder [Unknown]
  - Haemorrhage [Unknown]
